FAERS Safety Report 21547477 (Version 1)
Quarter: 2022Q4

REPORT INFORMATION
  Report Type: Spontaneous
  Country: US (occurrence: None)
  Receive Date: 20221102
  Receipt Date: 20221102
  Transmission Date: 20230113
  Serious: Yes (Hospitalization)
  Sender: FDA-Public Use
  Company Number: None

PATIENT
  Sex: Male
  Weight: 66.7 kg

DRUGS (3)
  1. CYTARABINE [Suspect]
     Active Substance: CYTARABINE
     Dates: end: 20221016
  2. SPRYCEL [Suspect]
     Active Substance: DASATINIB
     Dates: end: 20221024
  3. METHOTREXATE [Suspect]
     Active Substance: METHOTREXATE
     Dates: end: 20221014

REACTIONS (2)
  - Febrile neutropenia [None]
  - Stomatitis [None]

NARRATIVE: CASE EVENT DATE: 20221024
